FAERS Safety Report 5296632-1 (Version None)
Quarter: 2007Q2

REPORT INFORMATION
  Report Type: 
  Country: None (occurrence: None)
  Receive Date: 20070413
  Receipt Date: 20070406
  Transmission Date: 20071010
  Serious: Yes (Other)
  Sender: FDA-Public Use
  Company Number: US-PFIZER INC-2007003460

PATIENT
  Sex: Male

DRUGS (1)
  1. NORVASC [Suspect]

REACTIONS (2)
  - GINGIVAL DISORDER [None]
  - TOOTH DISORDER [None]
